FAERS Safety Report 13126106 (Version 1)
Quarter: 2017Q1

REPORT INFORMATION
  Report Type: Spontaneous
  Country: FR (occurrence: FR)
  Receive Date: 20170118
  Receipt Date: 20170118
  Transmission Date: 20170428
  Serious: Yes (Hospitalization, Other)
  Sender: FDA-Public Use
  Company Number: FR-PFIZER INC-2016605559

PATIENT
  Age: 59 Year
  Sex: Male

DRUGS (1)
  1. METHOTREXATE SODIUM. [Suspect]
     Active Substance: METHOTREXATE SODIUM
     Indication: OSTEOSARCOMA
     Dosage: 5 G/M2

REACTIONS (16)
  - Enteritis necroticans [Recovered/Resolved]
  - Acute kidney injury [Recovered/Resolved]
  - Hepatitis cholestatic [Recovered/Resolved]
  - Ascites [Recovered/Resolved]
  - Interstitial lung disease [Recovered/Resolved]
  - Hypoalbuminaemia [Recovered/Resolved]
  - Febrile bone marrow aplasia [Recovered/Resolved]
  - Coma [Recovered/Resolved]
  - Proctitis ulcerative [Recovered/Resolved]
  - Meningorrhagia [Recovered/Resolved]
  - Septic shock [Recovered/Resolved]
  - Toxicity to various agents [Recovered/Resolved with Sequelae]
  - Skin hyperpigmentation [Recovered/Resolved with Sequelae]
  - Mucosal inflammation [Recovered/Resolved]
  - Purpura [Recovered/Resolved]
  - Dermatitis bullous [Recovered/Resolved]
